FAERS Safety Report 25028634 (Version 1)
Quarter: 2025Q1

REPORT INFORMATION
  Report Type: Report from Study
  Country: ES (occurrence: ES)
  Receive Date: 20250302
  Receipt Date: 20250302
  Transmission Date: 20250408
  Serious: Yes (Other)
  Sender: AUROBINDO
  Company Number: ES-MYLANLABS-2025M1011931

PATIENT
  Age: 66 Year
  Sex: Female

DRUGS (7)
  1. LAMIVUDINE [Interacting]
     Active Substance: LAMIVUDINE
     Indication: HIV infection
     Dosage: 300 MILLIGRAM, ONCE A DAY
     Route: 048
  2. RALTEGRAVIR [Interacting]
     Active Substance: RALTEGRAVIR
     Indication: HIV infection
     Dosage: 1200 MILLIGRAM, ONCE A DAY
     Route: 048
  3. GINKGO\MAGNESIUM [Interacting]
     Active Substance: GINKGO\MAGNESIUM
     Indication: Open angle glaucoma
     Route: 065
  4. ALENDRONATE [Concomitant]
     Active Substance: ALENDRONATE SODIUM
     Indication: Product used for unknown indication
     Route: 065
  5. CALCIUM CARBONATE [Concomitant]
     Active Substance: CALCIUM CARBONATE
     Indication: Product used for unknown indication
     Route: 065
  6. ATORVASTATIN [Concomitant]
     Active Substance: ATORVASTATIN
     Indication: Product used for unknown indication
     Route: 065
  7. CALCIFEDIOL [Concomitant]
     Active Substance: CALCIFEDIOL
     Indication: Product used for unknown indication
     Route: 065

REACTIONS (2)
  - Drug interaction [Recovering/Resolving]
  - Virologic failure [Recovering/Resolving]
